FAERS Safety Report 4282936-8 (Version None)
Quarter: 2004Q1

REPORT INFORMATION
  Report Type: 
  Country: None (occurrence: None)
  Receive Date: 20040130
  Receipt Date: 20040114
  Transmission Date: 20041129
  Serious: Yes (Other)
  Sender: FDA-Public Use
  Company Number: SE-ROCHE-357117

PATIENT
  Sex: Male

DRUGS (3)
  1. ZENAPAX [Suspect]
     Indication: DRUG USE FOR UNKNOWN INDICATION
     Dosage: 10 DOSES WERE GIVEN
     Route: 065
  2. TACROLIMUS [Concomitant]
  3. RAPAMUNE [Concomitant]

REACTIONS (1)
  - SQUAMOUS CELL CARCINOMA [None]
